FAERS Safety Report 6221013-3 (Version None)
Quarter: 2009Q2

REPORT INFORMATION
  Report Type: 
  Country: None (occurrence: None)
  Receive Date: 20090610
  Receipt Date: 20090526
  Transmission Date: 20091009
  Serious: Yes (Congenital Anomaly)
  Sender: FDA-Public Use
  Company Number: A0679364A

PATIENT
  Sex: Female
  Weight: 3.9 kg

DRUGS (3)
  1. PAXIL CR [Suspect]
     Indication: ANXIETY
     Dosage: 25MG PER DAY
     Dates: start: 20030201, end: 20030401
  2. ZOLOFT [Concomitant]
     Dates: start: 19990101
  3. VITAMIN TAB [Concomitant]

REACTIONS (4)
  - DRUG EXPOSURE DURING PREGNANCY [None]
  - EBSTEIN'S ANOMALY [None]
  - VENTRICULAR SEPTAL DEFECT [None]
  - WOLFF-PARKINSON-WHITE SYNDROME [None]
